FAERS Safety Report 12267141 (Version 1)
Quarter: 2016Q2

REPORT INFORMATION
  Report Type: Spontaneous
  Country: US (occurrence: None)
  Receive Date: 20160413
  Receipt Date: 20160413
  Transmission Date: 20160815
  Serious: Yes (Hospitalization)
  Sender: FDA-Public Use
  Company Number: None

PATIENT
  Age: 64 Year
  Sex: Female
  Weight: 98.8 kg

DRUGS (7)
  1. CALCIUM-VITAMIN D [Concomitant]
  2. LENALIDOMIDE, 5 MG [Suspect]
     Active Substance: LENALIDOMIDE
     Indication: PLASMA CELL MYELOMA
     Route: 048
     Dates: start: 20151221, end: 20160330
  3. FOLIC ACID. [Concomitant]
     Active Substance: FOLIC ACID
  4. ACYCLOVIR. [Concomitant]
     Active Substance: ACYCLOVIR
  5. GABAPENTIN. [Concomitant]
     Active Substance: GABAPENTIN
  6. VITAMIN B COMPLEX [Concomitant]
     Active Substance: CYANOCOBALAMIN\DEXPANTHENOL\NIACINAMIDE\PYRIDOXINE HYDROCHLORIDE\RIBOFLAVIN 5^-PHOSPHATE SODIUM\THIAMINE HYDROCHLORIDE\VITAMIN B COMPLEX
  7. ASPIRIN. [Concomitant]
     Active Substance: ASPIRIN

REACTIONS (8)
  - Malaise [None]
  - Cough [None]
  - Rhinovirus infection [None]
  - White blood cell count abnormal [None]
  - Fatigue [None]
  - Pyrexia [None]
  - Chills [None]
  - Dehydration [None]

NARRATIVE: CASE EVENT DATE: 20160330
